FAERS Safety Report 17507006 (Version 2)
Quarter: 2021Q1

REPORT INFORMATION
  Report Type: Spontaneous
  Country: US (occurrence: US)
  Receive Date: 20200305
  Receipt Date: 20210227
  Transmission Date: 20210419
  Serious: No
  Sender: FDA-Public Use
  Company Number: US-ROCHE-2498080

PATIENT
  Sex: Female

DRUGS (2)
  1. XOLAIR [Suspect]
     Active Substance: OMALIZUMAB
     Dosage: FORM STRENGTH 150 MG/ML
     Route: 058
     Dates: start: 20190328
  2. XOLAIR [Suspect]
     Active Substance: OMALIZUMAB
     Indication: ASTHMA
     Route: 058
     Dates: start: 20190328

REACTIONS (4)
  - Pain in extremity [Unknown]
  - Neck pain [Unknown]
  - Facial pain [Unknown]
  - Back pain [Unknown]
